FAERS Safety Report 14761500 (Version 1)
Quarter: 2018Q2

REPORT INFORMATION
  Report Type: Spontaneous
  Country: US (occurrence: US)
  Receive Date: 20180416
  Receipt Date: 20180416
  Transmission Date: 20180711
  Serious: No
  Sender: FDA-Public Use
  Company Number: US-BION-006094

PATIENT
  Age: 87 Year
  Sex: Female
  Weight: 67 kg

DRUGS (1)
  1. ALEVE [Suspect]
     Active Substance: NAPROXEN SODIUM
     Indication: PAIN
     Route: 048
     Dates: start: 2017

REACTIONS (2)
  - Poor quality drug administered [Unknown]
  - Product physical issue [Unknown]

NARRATIVE: CASE EVENT DATE: 2017
